FAERS Safety Report 4310979-4 (Version None)
Quarter: 2004Q1

REPORT INFORMATION
  Report Type: 
  Country: None (occurrence: None)
  Receive Date: 20040304
  Receipt Date: 20030711
  Transmission Date: 20041129
  Serious: Yes (Life-Threatening, Other)
  Sender: FDA-Public Use
  Company Number: PHHO2003CA08903

PATIENT
  Age: 27 Year
  Sex: Male

DRUGS (2)
  1. CLOZARIL [Suspect]
     Indication: SCHIZOPHRENIA
     Dosage: 25 MG / DAY
     Dates: start: 20030506, end: 20030508
  2. ZYPREXA [Concomitant]

REACTIONS (5)
  - AUTONOMIC NERVOUS SYSTEM IMBALANCE [None]
  - BODY TEMPERATURE INCREASED [None]
  - HYPERTENSION [None]
  - RENAL NEOPLASM [None]
  - TACHYCARDIA [None]
